FAERS Safety Report 5606771-0 (Version None)
Quarter: 2008Q1

REPORT INFORMATION
  Report Type: 
  Country: None (occurrence: None)
  Receive Date: 20080129
  Receipt Date: 20080118
  Transmission Date: 20080703
  Serious: Yes (Other)
  Sender: FDA-Public Use
  Company Number: GB-RANBAXY-2008RR-12734

PATIENT

DRUGS (3)
  1. FLUOXETINE 20MG CAPSULES [Suspect]
     Dosage: 20 MG, QD
     Route: 048
     Dates: start: 20070101
  2. METOCLOPRAMID COMPRIMATE 10MG [Suspect]
     Dosage: 10 MG, TID
     Route: 048
     Dates: start: 20080111, end: 20080112
  3. AMOXICILLIN [Concomitant]
     Dosage: 500 MG, TID
     Route: 048
     Dates: start: 20080111

REACTIONS (2)
  - DRUG INTERACTION [None]
  - DYSTONIA [None]
